FAERS Safety Report 24907390 (Version 1)
Quarter: 2025Q1

REPORT INFORMATION
  Report Type: Spontaneous
  Country: SA (occurrence: SA)
  Receive Date: 20250130
  Receipt Date: 20250130
  Transmission Date: 20250408
  Serious: Yes (Other)
  Sender: AMGEN
  Company Number: SA-AMGEN-SAUSP2025014844

PATIENT

DRUGS (2)
  1. ADALIMUMAB [Suspect]
     Active Substance: ADALIMUMAB
     Indication: Crohn^s disease
     Route: 065
  2. ADALIMUMAB [Suspect]
     Active Substance: ADALIMUMAB
     Indication: Colitis ulcerative

REACTIONS (32)
  - Immune-mediated gastrointestinal disorder [Unknown]
  - Autoimmune pancreatitis [Unknown]
  - Eosinophilic oesophagitis [Unknown]
  - Coeliac disease [Unknown]
  - Primary biliary cholangitis [Unknown]
  - Psoriatic arthropathy [Unknown]
  - Rheumatoid arthritis [Unknown]
  - Fibromyalgia [Unknown]
  - Peripheral spondyloarthritis [Unknown]
  - Spondylitis [Unknown]
  - Vitiligo [Unknown]
  - Hidradenitis [Unknown]
  - Pyoderma gangrenosum [Unknown]
  - Type 1 diabetes mellitus [Unknown]
  - Graves^ disease [Unknown]
  - Embolism venous [Unknown]
  - Autoimmune hypothyroidism [Unknown]
  - Cholangitis sclerosing [Unknown]
  - Autoimmune eye disorder [Unknown]
  - Autoimmune endocrine disorder [Unknown]
  - Autoimmune hepatitis [Unknown]
  - Systemic lupus erythematosus [Unknown]
  - Uveitis [Unknown]
  - Multiple sclerosis [Unknown]
  - Sacroiliitis [Unknown]
  - Erythema nodosum [Unknown]
  - Aphthous ulcer [Unknown]
  - Angiopathy [Unknown]
  - Henoch-Schonlein purpura [Unknown]
  - Psoriasis [Unknown]
  - Asthma [Unknown]
  - Sarcoidosis [Unknown]
